FAERS Safety Report 7180611-3 (Version None)
Quarter: 2010Q4

REPORT INFORMATION
  Report Type: 
  Country: None (occurrence: None)
  Receive Date: 20101221
  Receipt Date: 20101214
  Transmission Date: 20110411
  Serious: Yes (Other)
  Sender: FDA-Public Use
  Company Number: CA-ABBOTT-10P-028-0691557-00

PATIENT
  Sex: Male

DRUGS (1)
  1. BIAXIN [Suspect]
     Indication: PRODUCT USED FOR UNKNOWN INDICATION
     Dates: start: 20060506

REACTIONS (6)
  - AGGRESSION [None]
  - ANXIETY [None]
  - BIPOLAR I DISORDER [None]
  - INCOHERENT [None]
  - RESTLESSNESS [None]
  - SELF INJURIOUS BEHAVIOUR [None]
